FAERS Safety Report 24727109 (Version 2)
Quarter: 2024Q4

REPORT INFORMATION
  Report Type: Spontaneous
  Country: US (occurrence: US)
  Receive Date: 20241212
  Receipt Date: 20241220
  Transmission Date: 20250115
  Serious: No
  Sender: PFIZER
  Company Number: US-PFIZER INC-202400320093

PATIENT
  Age: 72 Year
  Sex: Male
  Weight: 78.47 kg

DRUGS (2)
  1. BRAFTOVI [Suspect]
     Active Substance: ENCORAFENIB
     Indication: Metastatic malignant melanoma
     Dosage: 450 MG, 1X/DAY (SIX AT NIGHT)
     Dates: start: 202311
  2. MEKTOVI [Suspect]
     Active Substance: BINIMETINIB
     Indication: Metastatic malignant melanoma
     Dosage: 45 MG, 2X/DAY (3 IN THE MORNING AND 3 AT NIGHT)
     Route: 048
     Dates: start: 202311

REACTIONS (6)
  - Headache [Unknown]
  - Pain [Unknown]
  - Dizziness [Unknown]
  - Back pain [Unknown]
  - Pain in extremity [Unknown]
  - Nausea [Unknown]
